FAERS Safety Report 18523338 (Version 1)
Quarter: 2020Q4

REPORT INFORMATION
  Report Type: Spontaneous
  Country: US (occurrence: US)
  Receive Date: 20201119
  Receipt Date: 20201119
  Transmission Date: 20210114
  Serious: No
  Sender: FDA-Public Use
  Company Number: US-GLAXOSMITHKLINE-US2020222955

PATIENT
  Age: 87 Year
  Sex: Female

DRUGS (5)
  1. BENEFIBER HEALTHY SHAPE [Suspect]
     Active Substance: STARCH, WHEAT
     Indication: IRRITABLE BOWEL SYNDROME
     Dosage: LEVEL TEASPOON, 2-TEASPOON BENEFIBER
     Dates: start: 20200721
  2. BENEFIBER HEALTHY SHAPE [Suspect]
     Active Substance: STARCH, WHEAT
     Indication: CONSTIPATION
  3. BREO ELLIPTA [Suspect]
     Active Substance: FLUTICASONE FUROATE\VILANTEROL TRIFENATATE
     Indication: ASTHMA
     Dosage: UNK
  4. CITRUCEL [Suspect]
     Active Substance: METHYLCELLULOSE (4000 MPA.S)
     Indication: PRODUCT USED FOR UNKNOWN INDICATION
     Dosage: UNK
  5. METAMUCIL [Suspect]
     Active Substance: PLANTAGO SEED
     Indication: PRODUCT USED FOR UNKNOWN INDICATION
     Dosage: UNK

REACTIONS (8)
  - Oral pain [Unknown]
  - Off label use [Unknown]
  - Product storage error [Unknown]
  - Product use in unapproved indication [Unknown]
  - Glossodynia [Unknown]
  - Tongue discomfort [Unknown]
  - Incorrect dose administered [Unknown]
  - Drug ineffective [Unknown]

NARRATIVE: CASE EVENT DATE: 20200721
